FAERS Safety Report 11780784 (Version 2)
Quarter: 2016Q2

REPORT INFORMATION
  Report Type: Report from Study
  Country: CA (occurrence: CA)
  Receive Date: 20151126
  Receipt Date: 20160620
  Transmission Date: 20160815
  Serious: Yes (Hospitalization, Other)
  Sender: FDA-Public Use
  Company Number: CA-BEH-2015056013

PATIENT
  Age: 47 Year
  Sex: Male
  Weight: 63.5 kg

DRUGS (2)
  1. HIZENTRA [Suspect]
     Active Substance: HUMAN IMMUNOGLOBULIN G
     Indication: SECONDARY IMMUNODEFICIENCY
     Dosage: 6 G, QW
     Route: 058
     Dates: start: 20150728
  2. HIZENTRA [Suspect]
     Active Substance: HUMAN IMMUNOGLOBULIN G
     Indication: CHRONIC MYELOID LEUKAEMIA

REACTIONS (2)
  - Weight decreased [Recovering/Resolving]
  - Lung transplant [Unknown]

NARRATIVE: CASE EVENT DATE: 2016
